FAERS Safety Report 7248481-2 (Version None)
Quarter: 2011Q1

REPORT INFORMATION
  Report Type: 
  Country: None (occurrence: None)
  Receive Date: 20110127
  Receipt Date: 20110120
  Transmission Date: 20110831
  Serious: Yes (Hospitalization)
  Sender: FDA-Public Use
  Company Number: US-GILEAD-2010-0034718

PATIENT
  Sex: Female

DRUGS (4)
  1. LETAIRIS [Suspect]
     Indication: PULMONARY ARTERIAL HYPERTENSION
     Route: 048
     Dates: start: 20091208
  2. ZOLOFT [Concomitant]
     Indication: DEPRESSION
  3. REVATIO [Concomitant]
     Indication: PULMONARY ARTERIAL HYPERTENSION
  4. LITHIUM [Concomitant]
     Indication: BIPOLAR DISORDER

REACTIONS (1)
  - SUICIDE ATTEMPT [None]
